FAERS Safety Report 25961590 (Version 1)
Quarter: 2025Q4

REPORT INFORMATION
  Report Type: Spontaneous
  Country: EU (occurrence: EU)
  Receive Date: 20251027
  Receipt Date: 20251027
  Transmission Date: 20260117
  Serious: No
  Sender: ALKEM
  Company Number: EU-ALKEM LABORATORIES LIMITED-DE-ALKEM-2025-07974

PATIENT
  Sex: Female

DRUGS (2)
  1. ESLICARBAZEPINE [Interacting]
     Active Substance: ESLICARBAZEPINE
     Indication: Epilepsy
     Dosage: 600 MILLIGRAM, BID (EVERY 12 HOUR), TABLET
     Route: 048
     Dates: start: 202503
  2. SALINE [Interacting]
     Active Substance: SODIUM CHLORIDE
     Indication: Dehydration
     Dosage: UNK
     Route: 065

REACTIONS (3)
  - Feeling abnormal [Recovering/Resolving]
  - Drug interaction [Unknown]
  - Underdose [Unknown]

NARRATIVE: CASE EVENT DATE: 20250601
